FAERS Safety Report 6422095-6 (Version None)
Quarter: 2009Q4

REPORT INFORMATION
  Report Type: 
  Country: None (occurrence: None)
  Receive Date: 20091030
  Receipt Date: 20091027
  Transmission Date: 20100525
  Serious: Yes (Hospitalization)
  Sender: FDA-Public Use
  Company Number: US-JNJFOC-20091008854

PATIENT
  Age: 47 Year
  Sex: Male

DRUGS (4)
  1. FAMOTIDINE [Suspect]
  2. FAMOTIDINE [Suspect]
     Indication: DRUG USE FOR UNKNOWN INDICATION
  3. MORPHINE [Concomitant]
  4. CEFOXITIN [Concomitant]

REACTIONS (1)
  - HEPATITIS ACUTE [None]
